FAERS Safety Report 7982848-X (Version None)
Quarter: 2011Q4

REPORT INFORMATION
  Report Type: 
  Country: None (occurrence: None)
  Receive Date: 20111215
  Receipt Date: 20111205
  Transmission Date: 20120403
  Serious: Yes (Hospitalization)
  Sender: FDA-Public Use
  Company Number: SI-SANOFI-AVENTIS-2011SA079090

PATIENT
  Sex: Male

DRUGS (5)
  1. MULTAQ [Suspect]
     Route: 065
  2. ULTOP [Concomitant]
     Route: 065
  3. SPIRIVA [Concomitant]
     Route: 048
  4. FLUTICASONE PROPIONATE/SALMETEROL [Concomitant]
     Route: 055
  5. ASPIRIN [Concomitant]
     Route: 065

REACTIONS (3)
  - ATRIAL FIBRILLATION [None]
  - OEDEMA PERIPHERAL [None]
  - CARDIAC FAILURE [None]
